FAERS Safety Report 6634670-4 (Version None)
Quarter: 2010Q1

REPORT INFORMATION
  Report Type: 
  Country: None (occurrence: None)
  Receive Date: 20100315
  Receipt Date: 20100309
  Transmission Date: 20100710
  Serious: Yes (Other)
  Sender: FDA-Public Use
  Company Number: DK-TEVA-221419ISR

PATIENT
  Sex: Male

DRUGS (4)
  1. METHOTREXATE [Suspect]
     Indication: RHEUMATOID ARTHRITIS
     Dates: start: 20080409
  2. METHOTREXATE [Suspect]
     Dates: start: 20080915
  3. METHYLPREDNISOLONE ACETATE [Concomitant]
     Indication: RHEUMATOID ARTHRITIS
     Route: 030
     Dates: start: 20080409
  4. FOLIC ACID [Concomitant]
     Route: 048

REACTIONS (3)
  - DENTAL CARIES [None]
  - SKIN INJURY [None]
  - TOOTH FRACTURE [None]
